FAERS Safety Report 24985923 (Version 2)
Quarter: 2025Q3

REPORT INFORMATION
  Report Type: Report from Study
  Country: US (occurrence: US)
  Receive Date: 20250219
  Receipt Date: 20250816
  Transmission Date: 20251020
  Serious: Yes (Other)
  Sender: ALEXION PHARMACEUTICALS
  Company Number: US-AstraZeneca-2019SE54224

PATIENT
  Age: 73 Year
  Sex: Female
  Weight: 52.617 kg

DRUGS (6)
  1. NEXIUM [Suspect]
     Active Substance: ESOMEPRAZOLE MAGNESIUM
     Indication: Hiatus hernia
     Dosage: 40 MILLIGRAM, QD
  2. NEXIUM [Suspect]
     Active Substance: ESOMEPRAZOLE MAGNESIUM
     Indication: Gastrooesophageal reflux disease
     Dosage: NEXIUM GENERIC
     Route: 065
     Dates: start: 20190319
  3. DALIRESP [Suspect]
     Active Substance: ROFLUMILAST
     Indication: Chronic obstructive pulmonary disease
     Dosage: 500 MICROGRAM, QD
  4. VENTOLIN [Concomitant]
     Active Substance: ALBUTEROL SULFATE
  5. ALBUTEROL [Concomitant]
     Active Substance: ALBUTEROL
  6. BENICAR [Concomitant]
     Active Substance: OLMESARTAN MEDOXOMIL

REACTIONS (18)
  - Blindness unilateral [Not Recovered/Not Resolved]
  - Lung carcinoma cell type unspecified stage IV [Not Recovered/Not Resolved]
  - Malignant neoplasm progression [Not Recovered/Not Resolved]
  - Breast cancer [Unknown]
  - Eating disorder [Not Recovered/Not Resolved]
  - Nausea [Unknown]
  - Hypoacusis [Not Recovered/Not Resolved]
  - Chronic obstructive pulmonary disease [Not Recovered/Not Resolved]
  - Burn oesophageal [Not Recovered/Not Resolved]
  - Blood cholesterol increased [Unknown]
  - Hypertension [Recovered/Resolved]
  - Blood pressure decreased [Unknown]
  - Weight decreased [Unknown]
  - Dysphagia [Not Recovered/Not Resolved]
  - Gallbladder polyp [Unknown]
  - Abdominal discomfort [Unknown]
  - Product substitution issue [Not Recovered/Not Resolved]
  - Product use issue [Unknown]

NARRATIVE: CASE EVENT DATE: 20060101
